FAERS Safety Report 24383747 (Version 1)
Quarter: 2024Q4

REPORT INFORMATION
  Report Type: Spontaneous
  Country: US (occurrence: None)
  Receive Date: 20241001
  Receipt Date: 20241001
  Transmission Date: 20250115
  Serious: Yes (Death)
  Sender: Public
  Company Number: None

PATIENT
  Sex: Female
  Weight: 76.9 kg

DRUGS (1)
  1. PONATINIB HYDROCHLORIDE [Suspect]
     Active Substance: PONATINIB HYDROCHLORIDE
     Dates: start: 20220414, end: 20230613

REACTIONS (7)
  - Shock [None]
  - Thrombotic microangiopathy [None]
  - Respiratory failure [None]
  - Pulse absent [None]
  - Respiratory arrest [None]
  - Pupil fixed [None]
  - Cardiac arrest [None]

NARRATIVE: CASE EVENT DATE: 20231224
